FAERS Safety Report 6689020-4 (Version None)
Quarter: 2010Q2

REPORT INFORMATION
  Report Type: 
  Country: None (occurrence: None)
  Receive Date: 20100420
  Receipt Date: 20100412
  Transmission Date: 20101027
  Serious: Yes (Other)
  Sender: FDA-Public Use
  Company Number: PHHY2010JP16834

PATIENT
  Age: 16 Year
  Sex: Male

DRUGS (4)
  1. NEORAL [Suspect]
     Indication: COLITIS ULCERATIVE
     Dosage: 200 MG DAILY
     Route: 048
     Dates: start: 20070801, end: 20090723
  2. NEORAL [Suspect]
     Indication: CROHN'S DISEASE
  3. MESALAZINE [Concomitant]
     Indication: COLITIS ULCERATIVE
  4. AZATHIOPRINE [Concomitant]
     Indication: PANCREATITIS

REACTIONS (6)
  - CLOSTRIDIUM COLITIS [None]
  - CONDITION AGGRAVATED [None]
  - DIARRHOEA [None]
  - DNA ANTIBODY POSITIVE [None]
  - HAEMATOCHEZIA [None]
  - WEIGHT DECREASED [None]
